FAERS Safety Report 7598536-8 (Version None)
Quarter: 2011Q3

REPORT INFORMATION
  Report Type: 
  Country: None (occurrence: None)
  Receive Date: 20110708
  Receipt Date: 20110627
  Transmission Date: 20111222
  Serious: Yes (Hospitalization)
  Sender: FDA-Public Use
  Company Number: US-ELI_LILLY_AND_COMPANY-US201106008624

PATIENT
  Age: 72 Year
  Sex: Male

DRUGS (7)
  1. HUMALOG [Suspect]
     Dosage: UNK, PRN
     Dates: start: 20090101
  2. HUMALOG [Suspect]
     Dosage: UNK, PRN
     Dates: start: 20110301
  3. NOVOLOG [Concomitant]
  4. HUMALOG [Suspect]
     Dosage: 36 U, TID
     Dates: start: 20090101
  5. LANTUS [Concomitant]
     Dosage: 50 U, BID
  6. HUMULIN R [Suspect]
     Indication: DIABETES MELLITUS
     Dosage: 50 U, BID
  7. HUMALOG [Suspect]
     Indication: DIABETES MELLITUS
     Dosage: 36 U, TID
     Dates: start: 20110301

REACTIONS (4)
  - EAR INFECTION [None]
  - HYPERHIDROSIS [None]
  - DIARRHOEA [None]
  - BLOOD GLUCOSE INCREASED [None]
